FAERS Safety Report 7001152-X (Version None)
Quarter: 2010Q3

REPORT INFORMATION
  Report Type: 
  Country: None (occurrence: None)
  Receive Date: 20100920
  Receipt Date: 20100914
  Transmission Date: 20110219
  Serious: Yes (Hospitalization)
  Sender: FDA-Public Use
  Company Number: FR-ROCHE-726905

PATIENT
  Sex: Female
  Weight: 76 kg

DRUGS (10)
  1. ROCEPHIN [Suspect]
     Indication: URINARY TRACT INFECTION
     Route: 042
     Dates: start: 20100817, end: 20100822
  2. CEFIXIME CHEWABLE [Suspect]
     Indication: PRODUCT USED FOR UNKNOWN INDICATION
     Route: 048
     Dates: start: 20100509, end: 20100519
  3. LIORESAL [Concomitant]
     Indication: MULTIPLE SCLEROSIS
  4. IRBESARTAN [Concomitant]
  5. HYPERIUM [Concomitant]
  6. NOROXIN [Concomitant]
     Dates: start: 20100509, end: 20100519
  7. FOSFOMYCINE [Concomitant]
     Dates: start: 20100509, end: 20100519
  8. IMIPENEM AND CILASTATIN [Concomitant]
     Dates: start: 20100509, end: 20100620
  9. AMIKIN [Concomitant]
     Dates: start: 20100509, end: 20100519
  10. ROVAMYCINE [Concomitant]
     Dosage: DOSE: 3 MILLIONS
     Route: 048
     Dates: start: 20100608, end: 20100615

REACTIONS (3)
  - EOSINOPHILIA [None]
  - PERICARDIAL EFFUSION [None]
  - PLEURAL EFFUSION [None]
